FAERS Safety Report 17656321 (Version 1)
Quarter: 2020Q2

REPORT INFORMATION
  Report Type: Spontaneous
  Country: ES (occurrence: ES)
  Receive Date: 20200410
  Receipt Date: 20200410
  Transmission Date: 20200713
  Serious: Yes (Hospitalization)
  Sender: FDA-Public Use
  Company Number: ES-TEVA-2020-ES-1221542

PATIENT
  Age: 88 Year
  Sex: Female

DRUGS (2)
  1. ENALAPRIL/HIDROCLOROTIAZIDA [Suspect]
     Active Substance: ENALAPRIL\HYDROCHLOROTHIAZIDE
     Indication: HYPERTENSION
     Dosage: 20MG/12.5MG, 1 DOSAGE FORMS 1 DAYS
     Route: 048
     Dates: start: 20200217, end: 20200227
  2. MIRTAZAPINA (2704A) [Suspect]
     Active Substance: MIRTAZAPINE
     Indication: INSOMNIA
     Dosage: 15 MG/24H , 15 MG 1 DAYS
     Route: 048
     Dates: start: 20200224, end: 20200227

REACTIONS (1)
  - Hyponatraemia [Recovered/Resolved]

NARRATIVE: CASE EVENT DATE: 20200227
